FAERS Safety Report 10911273 (Version 2)
Quarter: 2020Q3

REPORT INFORMATION
  Report Type: Spontaneous
  Country: JP (occurrence: JP)
  Receive Date: 20150312
  Receipt Date: 20200813
  Transmission Date: 20201102
  Serious: Yes (Hospitalization)
  Sender: FDA-Public Use
  Company Number: PHJP2015JP002577

PATIENT
  Age: 60 Year
  Sex: Male
  Weight: 75 kg

DRUGS (9)
  1. NEORAL [Concomitant]
     Active Substance: CYCLOSPORINE
     Indication: RENAL TRANSPLANT
     Dosage: 35 MG, BID
     Route: 048
     Dates: start: 201101
  2. CERTICAN [Suspect]
     Active Substance: EVEROLIMUS
     Indication: RENAL TRANSPLANT
  3. CELLCEPT [Suspect]
     Active Substance: MYCOPHENOLATE MOFETIL\MYCOPHENOLATE MOFETIL HYDROCHLORIDE
     Indication: RENAL TRANSPLANT
  4. URIEF [Concomitant]
     Active Substance: SILODOSIN
     Indication: BENIGN PROSTATIC HYPERPLASIA
     Dosage: 4 MG, BID
     Route: 048
     Dates: start: 201105
  5. DIOVAN [Concomitant]
     Active Substance: VALSARTAN
     Indication: HYPERTENSION
     Dosage: 40 MG, QD
     Route: 048
  6. CERTICAN [Suspect]
     Active Substance: EVEROLIMUS
     Indication: IMMUNOSUPPRESSION
     Dosage: 0.25 MG, BID
     Route: 048
     Dates: start: 20130122, end: 20140527
  7. ALLOPURINOL. [Suspect]
     Active Substance: ALLOPURINOL
     Indication: HYPERURICAEMIA
     Dosage: 100 MG, QD
     Route: 048
  8. MEDROL [Concomitant]
     Active Substance: METHYLPREDNISOLONE
     Indication: RENAL TRANSPLANT
     Dosage: 2 MG, QD
     Route: 048
     Dates: start: 201101
  9. CELLCEPT [Suspect]
     Active Substance: MYCOPHENOLATE MOFETIL\MYCOPHENOLATE MOFETIL HYDROCHLORIDE
     Indication: IMMUNOSUPPRESSION
     Dosage: 500 MG, BID
     Route: 048
     Dates: start: 201101

REACTIONS (5)
  - Productive cough [Unknown]
  - Pyrexia [Unknown]
  - Pulmonary fibrosis [Recovering/Resolving]
  - Dyspnoea [Unknown]
  - Pneumonia chlamydial [Unknown]

NARRATIVE: CASE EVENT DATE: 20140516
